FAERS Safety Report 6940055-3 (Version None)
Quarter: 2010Q3

REPORT INFORMATION
  Report Type: 
  Country: None (occurrence: None)
  Receive Date: 20100825
  Receipt Date: 20100813
  Transmission Date: 20110219
  Serious: Yes (Other)
  Sender: FDA-Public Use
  Company Number: PHHY2010US54022

PATIENT
  Age: 46 Year
  Sex: Male

DRUGS (4)
  1. PROLEUKIN [Suspect]
     Indication: HIV INFECTION
     Dosage: 7.5 MIOU FOR 5 DAYS EVERY 2 MONTH
     Route: 058
  2. PROLEUKIN [Suspect]
     Dosage: 6.0 MIOU
  3. PROLEUKIN [Suspect]
     Dosage: 4.5 MIOU TWICE DAILY FOR 5 DAYS
     Route: 058
  4. PROLEUKIN [Suspect]
     Dosage: 4.5 MIOU TWICE DAILY FOR 5 DAYS
     Route: 058

REACTIONS (17)
  - ACUTE FEBRILE NEUTROPHILIC DERMATOSIS [None]
  - BLISTER [None]
  - DERMATITIS BULLOUS [None]
  - ERYTHEMA [None]
  - FATIGUE [None]
  - INJECTION SITE ERYTHEMA [None]
  - LEUKOCYTOCLASTIC VASCULITIS [None]
  - NODULE [None]
  - PALLOR [None]
  - POST INFLAMMATORY PIGMENTATION CHANGE [None]
  - PSEUDOLYMPHOMA [None]
  - PYREXIA [None]
  - RASH ERYTHEMATOUS [None]
  - SKIN EXFOLIATION [None]
  - SKIN HYPERPIGMENTATION [None]
  - SKIN OEDEMA [None]
  - SKIN PLAQUE [None]
